FAERS Safety Report 7531566-0 (Version None)
Quarter: 2011Q2

REPORT INFORMATION
  Report Type: 
  Country: None (occurrence: None)
  Receive Date: 20110606
  Receipt Date: 20110606
  Transmission Date: 20111010
  Serious: No
  Sender: FDA-Public Use
  Company Number: None

PATIENT
  Age: 53 Year
  Sex: Male

DRUGS (1)
  1. ANCEF [Suspect]
     Dates: start: 20090501, end: 20090501

REACTIONS (6)
  - ABDOMINAL PAIN [None]
  - BLOOD BILIRUBIN INCREASED [None]
  - DECREASED APPETITE [None]
  - WEIGHT DECREASED [None]
  - PANCREATITIS [None]
  - LIVER DISORDER [None]
